FAERS Safety Report 6174340-2 (Version None)
Quarter: 2009Q2

REPORT INFORMATION
  Report Type: 
  Country: None (occurrence: None)
  Receive Date: 20090430
  Receipt Date: 20080520
  Transmission Date: 20091009
  Serious: No
  Sender: FDA-Public Use
  Company Number: US-ASTRAZENECA-2008UW10331

PATIENT
  Age: 74 Year
  Sex: Female
  Weight: 52.2 kg

DRUGS (5)
  1. NEXIUM [Suspect]
     Indication: GASTROOESOPHAGEAL REFLUX DISEASE
     Route: 048
     Dates: start: 20070401
  2. CLONAZEPAM [Concomitant]
  3. LEVOTHYROXINE SODIUM [Concomitant]
  4. MYCARDIS [Concomitant]
  5. EVISTA [Concomitant]

REACTIONS (1)
  - INCREASED UPPER AIRWAY SECRETION [None]
